FAERS Safety Report 6389447 (Version 12)
Quarter: 2014Q3

REPORT INFORMATION
  Report Type: Spontaneous
  Country: US (occurrence: US)
  Receive Date: 20070823
  Receipt Date: 20140707
  Transmission Date: 20150326
  Serious: Yes (Other)
  Sender: FDA-Public Use
  Company Number: PHEH2007US11290

PATIENT
  Sex: Male
  Weight: 77.1 kg

DRUGS (16)
  1. CLINDAMYCIN [Concomitant]
     Active Substance: CLINDAMYCIN\CLINDAMYCIN PHOSPHATE
     Dosage: 210 MG, UNK
  2. ZOMETA [Suspect]
     Active Substance: ZOLEDRONIC ACID
     Indication: PLASMA CELL MYELOMA
     Route: 042
     Dates: start: 2004, end: 20061113
  3. VINCRISTINE + ADRIAMYCIN + DEXAMETHASONE [Concomitant]
  4. PENICILLIN ^GRUNENTHAL^ [Concomitant]
  5. PERIDEX [Concomitant]
     Active Substance: CHLORHEXIDINE GLUCONATE
  6. CIPROFLOXACIN. [Concomitant]
     Active Substance: CIPROFLOXACIN
  7. ASA [Concomitant]
     Active Substance: ASPIRIN
     Dosage: 81 MG, QD
     Route: 048
  8. LISINOPRIL. [Concomitant]
     Active Substance: LISINOPRIL
     Dosage: 10 MG, QD
     Route: 048
  9. AREDIA [Suspect]
     Active Substance: PAMIDRONATE DISODIUM
     Indication: PLASMA CELL MYELOMA
     Dosage: UNK UKN, UNK
     Route: 042
     Dates: start: 20090414, end: 20100416
  10. PREVACID [Concomitant]
     Active Substance: LANSOPRAZOLE
     Dosage: 30 MG, PRN
     Route: 048
  11. ZOLOFT [Concomitant]
     Active Substance: SERTRALINE HYDROCHLORIDE
     Dosage: 100 MG, QD
     Route: 048
  12. ALPRAZOLAM. [Concomitant]
     Active Substance: ALPRAZOLAM
     Dosage: 0.25 MG, Q6H, PRN
     Route: 048
  13. SERTRALINE HYDROCHLORIDE. [Concomitant]
     Active Substance: SERTRALINE HYDROCHLORIDE
     Dosage: 100 MG, QD
     Route: 048
  14. MELPHALAN [Concomitant]
     Active Substance: MELPHALAN
  15. ACYCLOVIR. [Concomitant]
     Active Substance: ACYCLOVIR
     Dosage: 400 MG, BID
  16. LIPITOR [Concomitant]
     Active Substance: ATORVASTATIN CALCIUM
     Dosage: 10 MG, QD
     Route: 048

REACTIONS (43)
  - Hypophagia [Unknown]
  - Emotional distress [Unknown]
  - Gastrooesophageal reflux disease [Unknown]
  - Fatigue [Unknown]
  - Schizophrenia [Unknown]
  - Periarthritis [Unknown]
  - Diabetes mellitus [Unknown]
  - Bone disorder [Unknown]
  - Hypercholesterolaemia [Unknown]
  - Sinusitis [Unknown]
  - Life expectancy shortened [Unknown]
  - Bone lesion [Unknown]
  - Back pain [Unknown]
  - Renal failure [Unknown]
  - Myocardial infarction [Unknown]
  - Tendonitis [Unknown]
  - Obesity [Unknown]
  - Eyelid disorder [Unknown]
  - Haematuria [Unknown]
  - Pain in extremity [Unknown]
  - Hypertension [Unknown]
  - Anxiety [Unknown]
  - Discomfort [Unknown]
  - Spinal osteoarthritis [Unknown]
  - Renal cyst [Unknown]
  - Mouth ulceration [Unknown]
  - Hyperlipidaemia [Unknown]
  - Otitis media [Unknown]
  - Oropharyngeal pain [Unknown]
  - Left ventricular dysfunction [Unknown]
  - Osteonecrosis of jaw [Unknown]
  - Pain [Unknown]
  - Anhedonia [Unknown]
  - Insomnia [Unknown]
  - Upper respiratory tract infection [Unknown]
  - Ear pruritus [Unknown]
  - Cardiac murmur [Unknown]
  - Depression [Unknown]
  - Deformity [Unknown]
  - Metaplasia [Unknown]
  - Osteopenia [Unknown]
  - Headache [Unknown]
  - Nasal congestion [Unknown]
